FAERS Safety Report 6775454-6 (Version None)
Quarter: 2010Q2

REPORT INFORMATION
  Report Type: 
  Country: None (occurrence: None)
  Receive Date: 20100617
  Receipt Date: 20100608
  Transmission Date: 20101027
  Serious: Yes (Life-Threatening)
  Sender: FDA-Public Use
  Company Number: JP-PFIZER INC-2010071840

PATIENT
  Age: 60 Year
  Sex: Female

DRUGS (12)
  1. RIFABUTIN [Suspect]
     Indication: MYCOBACTERIUM AVIUM COMPLEX INFECTION
     Dosage: 150 MG, 1X/DAY
     Route: 048
     Dates: start: 20081202, end: 20090113
  2. RIFABUTIN [Suspect]
     Dosage: 150 MG, 1X/DAY
     Route: 048
     Dates: start: 20090501, end: 20090916
  3. EBUTOL [Concomitant]
     Indication: MYCOBACTERIUM AVIUM COMPLEX INFECTION
     Dosage: 750 MG, 1X/DAY
     Route: 048
  4. KLARICID [Concomitant]
     Indication: MYCOBACTERIUM AVIUM COMPLEX INFECTION
     Dosage: 400 MG, 2X/DAY
     Route: 048
     Dates: end: 20100430
  5. KLARICID [Concomitant]
     Dosage: 200 MG, 3X/DAY
     Dates: start: 20100501
  6. CRAVIT [Concomitant]
     Indication: MYCOBACTERIUM AVIUM COMPLEX INFECTION
     Dosage: 200 MG, 2X/DAY
     Route: 048
     Dates: end: 20090727
  7. MUCOSIL-10 [Concomitant]
     Indication: MYCOBACTERIUM AVIUM COMPLEX INFECTION
     Dosage: 15 MG, 3X/DAY
     Route: 048
  8. RESPLEN [Concomitant]
     Indication: MYCOBACTERIUM AVIUM COMPLEX INFECTION
     Dosage: 20 MG, 3X/DAY
     Route: 048
  9. ASTHPHYLLIN [Concomitant]
     Indication: MYCOBACTERIUM AVIUM COMPLEX INFECTION
     Dosage: 2 DF, 3X/DAY
     Route: 048
     Dates: end: 20090916
  10. SELBEX [Concomitant]
     Indication: PROPHYLAXIS AGAINST GASTROINTESTINAL ULCER
     Dosage: 500 MG, 3X/DAY
     Route: 048
  11. LEVOFLOXACIN [Concomitant]
     Indication: MYCOBACTERIUM AVIUM COMPLEX INFECTION
     Dosage: 200 MG, 2X/DAY
     Route: 048
     Dates: start: 20090728, end: 20090916
  12. MYSLEE [Concomitant]
     Indication: INSOMNIA
     Dosage: 5 MG, 1X/DAY
     Route: 048
     Dates: start: 20090727, end: 20090916

REACTIONS (2)
  - CARDIAC FAILURE ACUTE [None]
  - CARDIOGENIC SHOCK [None]
